FAERS Safety Report 7766190-8 (Version None)
Quarter: 2011Q3

REPORT INFORMATION
  Report Type: 
  Country: None (occurrence: None)
  Receive Date: 20110921
  Receipt Date: 20110912
  Transmission Date: 20111222
  Serious: Yes (Hospitalization)
  Sender: FDA-Public Use
  Company Number: US-RB-032168-11

PATIENT
  Age: 19 Year
  Sex: Female

DRUGS (1)
  1. SUBOXONE FILM STRIP [Suspect]
     Indication: DRUG DEPENDENCE
     Dosage: 8-16 MG DAILY
     Route: 060
     Dates: end: 20110911

REACTIONS (2)
  - ELECTROLYTE IMBALANCE [None]
  - DRUG WITHDRAWAL SYNDROME [None]
